FAERS Safety Report 20864854 (Version 1)
Quarter: 2022Q2

REPORT INFORMATION
  Report Type: Spontaneous
  Country: IN (occurrence: IN)
  Receive Date: 20220524
  Receipt Date: 20220524
  Transmission Date: 20220720
  Serious: Yes (Other)
  Sender: FDA-Public Use
  Company Number: IN-LUPIN PHARMACEUTICALS INC.-2022-07332

PATIENT
  Age: 48 Year
  Sex: Male

DRUGS (1)
  1. RIFABUTIN [Suspect]
     Active Substance: RIFABUTIN
     Indication: Antibiotic prophylaxis
     Dosage: 300 MILLIGRAM, QD
     Route: 048

REACTIONS (2)
  - Uveitis [Recovering/Resolving]
  - Hypopyon [Recovered/Resolved]
